FAERS Safety Report 6362343-4 (Version None)
Quarter: 2009Q3

REPORT INFORMATION
  Report Type: 
  Country: None (occurrence: None)
  Receive Date: 20090918
  Receipt Date: 20090702
  Transmission Date: 20100115
  Serious: No
  Sender: FDA-Public Use
  Company Number: US-ABBOTT-09P-163-0569708-00

PATIENT
  Sex: Female
  Weight: 104.42 kg

DRUGS (8)
  1. HUMIRA [Suspect]
     Indication: PSORIASIS
     Route: 058
     Dates: start: 20090326
  2. HUMIRA [Suspect]
     Indication: PSORIATIC ARTHROPATHY
  3. PLAVIX [Concomitant]
     Indication: DRUG USE FOR UNKNOWN INDICATION
  4. THRYOID PILL [Concomitant]
     Indication: DRUG USE FOR UNKNOWN INDICATION
  5. COQ10 [Concomitant]
     Indication: DRUG USE FOR UNKNOWN INDICATION
  6. FLAX SEED [Concomitant]
     Indication: DRUG USE FOR UNKNOWN INDICATION
  7. ADVIL [Concomitant]
     Indication: DRUG USE FOR UNKNOWN INDICATION
  8. EXFORGE [Concomitant]
     Indication: HYPERTENSION
     Route: 048

REACTIONS (8)
  - ALOPECIA [None]
  - FATIGUE [None]
  - INJECTION SITE PAIN [None]
  - OEDEMA PERIPHERAL [None]
  - PAIN IN EXTREMITY [None]
  - PRURITUS [None]
  - PSORIASIS [None]
  - SWELLING [None]
